FAERS Safety Report 7577239-X (Version None)
Quarter: 2011Q2

REPORT INFORMATION
  Report Type: 
  Country: None (occurrence: None)
  Receive Date: 20110628
  Receipt Date: 20101101
  Transmission Date: 20111010
  Serious: No
  Sender: FDA-Public Use
  Company Number: US-BAYER-201041085NA

PATIENT
  Age: 35 Year
  Sex: Female

DRUGS (2)
  1. MIRENA [Suspect]
     Indication: CONTRACEPTION
     Dosage: 20 MG/D, CONT
     Route: 015
     Dates: end: 20100801
  2. UNCODEABLE ^UNCLASSIFIABLE^ [Concomitant]

REACTIONS (2)
  - NAUSEA [None]
  - MOOD SWINGS [None]
